FAERS Safety Report 9774174 (Version 1)
Quarter: 2013Q4

REPORT INFORMATION
  Report Type: Report from Study
  Country: DE (occurrence: DE)
  Receive Date: 20131220
  Receipt Date: 20131220
  Transmission Date: 20140711
  Serious: Yes (Hospitalization, Other)
  Sender: FDA-Public Use
  Company Number: DE-ROCHE-1320881

PATIENT
  Age: 76 Year
  Sex: Female

DRUGS (5)
  1. ZELBORAF [Suspect]
     Indication: MALIGNANT MELANOMA
     Route: 065
     Dates: start: 20130308, end: 20130313
  2. ZELBORAF [Suspect]
     Route: 065
     Dates: start: 20130321, end: 20130411
  3. ZELBORAF [Suspect]
     Route: 065
     Dates: start: 20130427, end: 20130704
  4. ZELBORAF [Suspect]
     Dosage: 4 WEEKS, INTERMITTEND WITH A 2 WEEK PAUSE
     Route: 065
     Dates: start: 20130704, end: 20131205
  5. ZELBORAF [Suspect]
     Route: 065
     Dates: start: 20131205

REACTIONS (20)
  - Bronchospasm [Unknown]
  - Vision blurred [Unknown]
  - Dyspnoea exertional [Unknown]
  - Pleural effusion [Unknown]
  - Cardiomegaly [Unknown]
  - Polyuria [Unknown]
  - Chronic obstructive pulmonary disease [Unknown]
  - Osteoporosis [Unknown]
  - Compression fracture [Unknown]
  - Oedema peripheral [Unknown]
  - Rash pruritic [Unknown]
  - Fatigue [Unknown]
  - Arthralgia [Unknown]
  - Hyperkeratosis [Unknown]
  - Arthralgia [Recovering/Resolving]
  - Myalgia [Recovering/Resolving]
  - Cyst [Unknown]
  - Milia [Unknown]
  - Weight decreased [Unknown]
  - Alopecia [Unknown]
